FAERS Safety Report 7165529-4 (Version None)
Quarter: 2010Q4

REPORT INFORMATION
  Report Type: 
  Country: None (occurrence: None)
  Receive Date: 20101215
  Receipt Date: 20100122
  Transmission Date: 20110411
  Serious: Yes (Other)
  Sender: FDA-Public Use
  Company Number: US-AMGEN-QUU383181

PATIENT

DRUGS (2)
  1. ENBREL [Suspect]
     Indication: JUVENILE ARTHRITIS
     Dosage: 50 MG, QWK
     Route: 058
     Dates: start: 20090731, end: 20091001
  2. ETODOLAC [Concomitant]
     Dosage: UNK UNK, BID
     Route: 048
     Dates: start: 20090707

REACTIONS (2)
  - AUTOIMMUNE HEPATITIS [None]
  - JUVENILE ARTHRITIS [None]
